FAERS Safety Report 17668855 (Version 1)
Quarter: 2020Q2

REPORT INFORMATION
  Report Type: Spontaneous
  Country: US (occurrence: US)
  Receive Date: 20200415
  Receipt Date: 20200415
  Transmission Date: 20200713
  Serious: No
  Sender: FDA-Public Use
  Company Number: US-DRREDDYS-USA/USA/20/0121842

PATIENT
  Age: 19 Year
  Sex: Female

DRUGS (5)
  1. LORAZEPAM INJECTION USP, 2 MG/ML AND 4 MG/ML [Concomitant]
     Active Substance: LORAZEPAM
     Indication: CATATONIA
  2. CLONAZEPAM. [Concomitant]
     Active Substance: CLONAZEPAM
     Indication: CATATONIA
  3. BENZTROPINE. [Concomitant]
     Active Substance: BENZTROPINE
     Indication: CATATONIA
  4. RISPERIDONE. [Suspect]
     Active Substance: RISPERIDONE
     Indication: CATATONIA
     Route: 065
  5. DIPHENHYDRAMINE HYDROCHLORIDE. [Concomitant]
     Active Substance: DIPHENHYDRAMINE HYDROCHLORIDE
     Indication: CATATONIA

REACTIONS (1)
  - Extrapyramidal disorder [Unknown]
